FAERS Safety Report 5682476-5 (Version None)
Quarter: 2008Q1

REPORT INFORMATION
  Report Type: 
  Country: None (occurrence: None)
  Receive Date: 20080327
  Receipt Date: 20080324
  Transmission Date: 20080703
  Serious: Yes (Death, Other)
  Sender: FDA-Public Use
  Company Number: BE-BRISTOL-MYERS SQUIBB COMPANY-14126254

PATIENT
  Age: 84 Year
  Sex: Male

DRUGS (1)
  1. CEFEPIME [Suspect]
     Indication: PNEUMONIA
     Dosage: INITIALLY 20 G AND LATER 13 G WAS GIVEN.

REACTIONS (7)
  - AGITATION [None]
  - APHASIA [None]
  - CARDIOPULMONARY FAILURE [None]
  - COMA [None]
  - ELECTROENCEPHALOGRAM ABNORMAL [None]
  - METABOLIC DISORDER [None]
  - MYOCLONUS [None]
